FAERS Safety Report 12989899 (Version 1)
Quarter: 2016Q4

REPORT INFORMATION
  Report Type: Spontaneous
  Country: US (occurrence: US)
  Receive Date: 20161201
  Receipt Date: 20161201
  Transmission Date: 20170207
  Serious: No
  Sender: FDA-Public Use
  Company Number: US-PFIZER INC-2015169490

PATIENT
  Age: 69 Year
  Sex: Female

DRUGS (4)
  1. FEMARA [Concomitant]
     Active Substance: LETROZOLE
     Dosage: 2.5 MG, DAILY
     Route: 048
     Dates: start: 20150428
  2. IBRANCE [Suspect]
     Active Substance: PALBOCICLIB
     Dosage: 125 MG, CYCLIC(DAILY WITH BREAKFAST FOR 21 DAYS FOLLOWED BY A 7 DAY REST PERIOD)
     Route: 048
     Dates: start: 20151015
  3. IBRANCE [Suspect]
     Active Substance: PALBOCICLIB
     Indication: BREAST CANCER FEMALE
     Dosage: 125 MG, CYCLIC(DAILY WITH BREAKFAST FOR 21 DAYS FOLLOWED BY A 7 DAY REST PERIOD)
     Route: 048
     Dates: start: 20150428
  4. IBRANCE [Suspect]
     Active Substance: PALBOCICLIB
     Dosage: 125 MG, CYCLIC(DAILY WITH BREAKFAST FOR 21 DAYS FOLLOWED BY A 7 DAY REST PERIOD)
     Route: 048
     Dates: start: 20150801

REACTIONS (2)
  - Diarrhoea [Unknown]
  - Constipation [Unknown]

NARRATIVE: CASE EVENT DATE: 201611
